FAERS Safety Report 14120182 (Version 2)
Quarter: 2017Q4

REPORT INFORMATION
  Report Type: Spontaneous
  Country: AR (occurrence: AR)
  Receive Date: 20171024
  Receipt Date: 20171114
  Transmission Date: 20180321
  Serious: Yes (Other)
  Sender: FDA-Public Use
  Company Number: AR-PFIZER INC-2017398532

PATIENT
  Age: 60 Year
  Sex: Female

DRUGS (2)
  1. IBRANCE [Suspect]
     Active Substance: PALBOCICLIB
     Dosage: 100 MG, UNK
     Dates: end: 20170724
  2. IBRANCE [Suspect]
     Active Substance: PALBOCICLIB
     Indication: BREAST CANCER METASTATIC
     Dosage: 125 MG, CYCLIC (3/1 SCHEME; 21 DAYS ON, 7 DAYS OFF)
     Dates: start: 20170209, end: 2017

REACTIONS (3)
  - Neoplasm progression [Unknown]
  - Laboratory test abnormal [Unknown]
  - Spinal column injury [Recovering/Resolving]

NARRATIVE: CASE EVENT DATE: 2017
